FAERS Safety Report 9386010 (Version 1)
Quarter: 2013Q3

REPORT INFORMATION
  Report Type: Spontaneous
  Country: RO (occurrence: RO)
  Receive Date: 20130705
  Receipt Date: 20130705
  Transmission Date: 20140515
  Serious: Yes (Death, Hospitalization, Other)
  Sender: FDA-Public Use
  Company Number: RO-ABBOTT-13P-135-1113993-00

PATIENT
  Age: 70 Year
  Sex: Male
  Weight: 112 kg

DRUGS (1)
  1. HUMIRA [Suspect]
     Indication: PSORIASIS
     Route: 058
     Dates: start: 20120328, end: 20130322

REACTIONS (22)
  - Cardiopulmonary failure [Fatal]
  - Arteriosclerosis [Fatal]
  - Aortic valve replacement [Fatal]
  - Heart valve replacement [Fatal]
  - Coronary artery bypass [Fatal]
  - Dyspnoea [Unknown]
  - Hyperhidrosis [Unknown]
  - Chest pain [Unknown]
  - Ischaemic cardiomyopathy [Unknown]
  - Bifascicular block [Unknown]
  - Ventricular extrasystoles [Unknown]
  - Periarthritis [Unknown]
  - Eosinophilia [Unknown]
  - Aortic stenosis [Unknown]
  - Aortic valve incompetence [Unknown]
  - Mitral valve calcification [Unknown]
  - Atrial fibrillation [Unknown]
  - Chronic obstructive pulmonary disease [Unknown]
  - Left ventricular failure [Unknown]
  - Arterial stenosis [Unknown]
  - Cardiac failure [Unknown]
  - Skin papilloma [Unknown]
